FAERS Safety Report 9641815 (Version 3)
Quarter: 2013Q4

REPORT INFORMATION
  Report Type: Report from Study
  Country: JP (occurrence: JP)
  Receive Date: 20131023
  Receipt Date: 20131209
  Transmission Date: 20140711
  Serious: Yes (Hospitalization)
  Sender: FDA-Public Use
  Company Number: JP-SHIRE-ALL1-2013-05754

PATIENT
  Age: 55 Year
  Sex: Female

DRUGS (24)
  1. 405 (LANTHANUM CARBONATE) [Suspect]
     Indication: HYPERPHOSPHATAEMIA
     Dosage: 500 MG, UNKNOWN
     Route: 048
     Dates: start: 20120531, end: 20130216
  2. 405 (LANTHANUM CARBONATE) [Suspect]
     Dosage: 250 MG, UNKNOWN
     Route: 048
     Dates: start: 20090416, end: 20090831
  3. 405 (LANTHANUM CARBONATE) [Suspect]
     Dosage: 500 MG, UNKNOWN
     Route: 048
     Dates: start: 20090901, end: 20091223
  4. 405 (LANTHANUM CARBONATE) [Suspect]
     Dosage: 750 MG, UNKNOWN
     Route: 048
     Dates: start: 20091224, end: 20100210
  5. 405 (LANTHANUM CARBONATE) [Suspect]
     Dosage: 500 MG, UNKNOWN
     Route: 048
     Dates: start: 20100211, end: 20110414
  6. 405 (LANTHANUM CARBONATE) [Suspect]
     Dosage: 750 MG, UNKNOWN
     Route: 048
     Dates: start: 20110415, end: 20120530
  7. PRECIPITATED CALCIUM CARBONATE [Concomitant]
     Indication: HYPERPHOSPHATAEMIA
     Dosage: 500 MG, UNKNOWN
     Route: 048
     Dates: start: 20090514, end: 20091223
  8. PRECIPITATED CALCIUM CARBONATE [Concomitant]
     Dosage: 1000 MG, UNKNOWN
     Route: 048
     Dates: start: 20091224, end: 20100715
  9. ROCALTROL [Concomitant]
     Indication: HYPOCALCAEMIA
     Dosage: .25 ?G, UNKNOWN
     Route: 048
     Dates: start: 20090326, end: 20091028
  10. ROCALTROL [Concomitant]
     Dosage: .25 ?G, UNKNOWN
     Route: 048
     Dates: start: 20100323, end: 20120927
  11. REGPARA [Concomitant]
     Indication: HYPERPARATHYROIDISM SECONDARY
     Dosage: 37.5 MG, UNKNOWN
     Route: 048
     Dates: start: 20090120, end: 20091028
  12. REGPARA [Concomitant]
     Dosage: 25 MG, UNKNOWN
     Route: 048
     Dates: start: 20091029, end: 20100125
  13. REGPARA [Concomitant]
     Dosage: 37.5 MG, UNKNOWN
     Route: 048
     Dates: start: 20100126, end: 20120927
  14. REGPARA [Concomitant]
     Dosage: 25 MG, UNKNOWN
     Route: 048
     Dates: start: 20120928, end: 20121122
  15. REGPARA [Concomitant]
     Dosage: 37.5 MG, UNKNOWN
     Route: 048
     Dates: start: 20121123, end: 20130216
  16. WARFARIN [Concomitant]
     Indication: AORTIC VALVE REPLACEMENT
     Dosage: 2 MG, UNKNOWN
     Route: 048
     Dates: end: 20130216
  17. PERYCIT [Concomitant]
     Indication: PRODUCT USED FOR UNKNOWN INDICATION
     Dosage: 750 MG, UNKNOWN
     Route: 048
     Dates: end: 20130216
  18. PURSENNID                          /00142207/ [Concomitant]
     Indication: PRODUCT USED FOR UNKNOWN INDICATION
     Dosage: 24 MG, UNKNOWN
     Route: 048
     Dates: end: 20130216
  19. EPOGIN [Concomitant]
     Indication: PRODUCT USED FOR UNKNOWN INDICATION
     Dosage: 3000 IU, UNKNOWN
     Route: 042
  20. FERRICON [Concomitant]
     Indication: PRODUCT USED FOR UNKNOWN INDICATION
     Dosage: 50 MG, UNKNOWN
     Route: 042
     Dates: start: 20090226
  21. ALFAROL [Concomitant]
     Indication: PRODUCT USED FOR UNKNOWN INDICATION
     Dosage: .25 ?G, UNKNOWN
     Route: 048
     Dates: start: 20121221, end: 20130216
  22. YODEL [Concomitant]
     Indication: CONSTIPATION
     Dosage: UNK UNK, UNKNOWN
     Route: 048
  23. ALOSENN                            /00476901/ [Concomitant]
     Indication: CONSTIPATION
     Dosage: UNK UNK, UNKNOWN
     Route: 048
  24. TPN                                /00897001/ [Concomitant]
     Indication: SUPPLEMENTATION THERAPY
     Dosage: UNK, UNKNOWN
     Route: 042
     Dates: start: 2013, end: 20130727

REACTIONS (4)
  - Mechanical ileus [Recovering/Resolving]
  - Intestinal ischaemia [Recovering/Resolving]
  - Septic shock [Unknown]
  - Decubitus ulcer [Recovered/Resolved]
